FAERS Safety Report 9379741 (Version 1)
Quarter: 2013Q3

REPORT INFORMATION
  Report Type: Spontaneous
  Country: FR (occurrence: FR)
  Receive Date: 20130702
  Receipt Date: 20130702
  Transmission Date: 20140515
  Serious: Yes (Hospitalization)
  Sender: FDA-Public Use
  Company Number: FR-PFIZER INC-2013189415

PATIENT
  Age: 81 Year
  Sex: Male

DRUGS (10)
  1. TAHOR [Suspect]
     Dosage: 80 MG DAILY
     Route: 048
     Dates: start: 20130519, end: 20130521
  2. ZOCOR [Concomitant]
     Dosage: 20 MG, DAILY
     Route: 048
     Dates: end: 20130519
  3. LASILIX [Concomitant]
     Dosage: 80 MG DAILY
     Route: 042
     Dates: start: 20130519
  4. KENZEN [Concomitant]
     Dosage: UNK
  5. IPERTEN [Concomitant]
     Dosage: UNK
     Dates: end: 20130519
  6. EUPRESSYL [Concomitant]
     Dosage: 30 MG TWICE
     Dates: end: 20130519
  7. PREVISCAN [Concomitant]
     Dosage: UNK
  8. KARDEGIC [Concomitant]
     Dosage: UNK
  9. RISORDAN [Concomitant]
     Dosage: UNK
     Dates: start: 20130519
  10. ASPIRINE [Concomitant]
     Dosage: UNK
     Dates: start: 20130519

REACTIONS (2)
  - Rhabdomyolysis [Recovered/Resolved]
  - Glomerular filtration rate decreased [Unknown]
